FAERS Safety Report 17753883 (Version 2)
Quarter: 2020Q2

REPORT INFORMATION
  Report Type: Spontaneous
  Country: US (occurrence: US)
  Receive Date: 20200507
  Receipt Date: 20200518
  Transmission Date: 20200714
  Serious: No
  Sender: FDA-Public Use
  Company Number: US-ELI_LILLY_AND_COMPANY-US202005000468

PATIENT
  Age: 59 Year
  Sex: Female

DRUGS (2)
  1. CYMBALTA [Suspect]
     Active Substance: DULOXETINE HYDROCHLORIDE
     Indication: PRODUCT USED FOR UNKNOWN INDICATION
     Dosage: 10 MG, UNKNOWN
     Route: 065
     Dates: start: 202004, end: 20200424
  2. HUMIRA [Suspect]
     Active Substance: ADALIMUMAB
     Indication: CROHN^S DISEASE
     Dosage: UNK UNK, UNKNOWN
     Route: 058
     Dates: end: 202004

REACTIONS (6)
  - Anxiety [Unknown]
  - Raynaud^s phenomenon [Unknown]
  - Migraine [Unknown]
  - Drug hypersensitivity [Not Recovered/Not Resolved]
  - Blood pressure decreased [Recovering/Resolving]
  - Withdrawal syndrome [Unknown]

NARRATIVE: CASE EVENT DATE: 202004
